FAERS Safety Report 12261604 (Version 1)
Quarter: 2016Q2

REPORT INFORMATION
  Report Type: Spontaneous
  Country: None (occurrence: None)
  Receive Date: 20160412
  Receipt Date: 20160412
  Transmission Date: 20160815
  Serious: No
  Sender: FDA-Public Use
  Company Number: None

PATIENT
  Age: 30 Year
  Sex: Male

DRUGS (1)
  1. SOVALDI [Suspect]
     Active Substance: SOFOSBUVIR
     Indication: HEPATITIS C
     Route: 048
     Dates: start: 20160224, end: 20160411

REACTIONS (4)
  - Anxiety [None]
  - Insomnia [None]
  - Irritability [None]
  - Aggression [None]

NARRATIVE: CASE EVENT DATE: 20160411
